FAERS Safety Report 5845329-5 (Version None)
Quarter: 2008Q3

REPORT INFORMATION
  Report Type: 
  Country: None (occurrence: None)
  Receive Date: 20080814
  Receipt Date: 20080808
  Transmission Date: 20090109
  Serious: Yes (Other)
  Sender: FDA-Public Use
  Company Number: US-AVENTIS-200811672US

PATIENT
  Sex: Female

DRUGS (5)
  1. KETEK [Suspect]
     Indication: SINUSITIS
     Route: 048
     Dates: start: 20060401, end: 20060101
  2. KETEK [Suspect]
     Route: 048
     Dates: start: 20060401, end: 20060101
  3. ASTELIN                            /00884002/ [Concomitant]
     Dosage: DOSE: UNK
  4. MUCINEX [Concomitant]
     Dosage: DOSE: UNK
  5. AMBIEN [Concomitant]
     Route: 048

REACTIONS (17)
  - ALANINE AMINOTRANSFERASE INCREASED [None]
  - ALOPECIA [None]
  - ASPARTATE AMINOTRANSFERASE INCREASED [None]
  - ASTHENIA [None]
  - CHILLS [None]
  - DRY SKIN [None]
  - DYSPEPSIA [None]
  - FATIGUE [None]
  - FEELING ABNORMAL [None]
  - HEPATIC ENZYME INCREASED [None]
  - HEPATITIS [None]
  - HYPERHIDROSIS [None]
  - JAUNDICE [None]
  - LETHARGY [None]
  - NAUSEA [None]
  - PYREXIA [None]
  - VOMITING [None]
